FAERS Safety Report 24144198 (Version 1)
Quarter: 2024Q3

REPORT INFORMATION
  Report Type: Spontaneous
  Country: US (occurrence: US)
  Receive Date: 20240727
  Receipt Date: 20240727
  Transmission Date: 20241016
  Serious: No
  Sender: SANOFI AVENTIS
  Company Number: US-SA-SAC20240724000602

PATIENT
  Sex: Female
  Weight: 109 kg

DRUGS (1)
  1. DUPIXENT [Suspect]
     Active Substance: DUPILUMAB
     Indication: Pruritus
     Dosage: INJECT 300 MG UNDER THE SKIN FREQUENCY : EVERY OTHER WEEK
     Route: 058

REACTIONS (2)
  - Brain fog [Unknown]
  - Product use in unapproved indication [Unknown]
